FAERS Safety Report 6451012-8 (Version None)
Quarter: 2009Q4

REPORT INFORMATION
  Report Type: 
  Country: None (occurrence: None)
  Receive Date: 20091123
  Receipt Date: 20091119
  Transmission Date: 20100525
  Serious: Yes (Hospitalization)
  Sender: FDA-Public Use
  Company Number: B0606186A

PATIENT
  Sex: Male

DRUGS (4)
  1. AUGMENTIN '125' [Suspect]
     Route: 048
     Dates: start: 20090101, end: 20090101
  2. THERALITE [Suspect]
     Route: 048
     Dates: end: 20090601
  3. MARSILID [Suspect]
     Route: 048
     Dates: end: 20090601
  4. ROVAMYCINE [Suspect]
     Route: 048
     Dates: start: 20090101, end: 20090101

REACTIONS (4)
  - DEHYDRATION [None]
  - DIARRHOEA [None]
  - GENERAL PHYSICAL HEALTH DETERIORATION [None]
  - ORTHOSTATIC HYPOTENSION [None]
